FAERS Safety Report 23419205 (Version 2)
Quarter: 2024Q1

REPORT INFORMATION
  Report Type: Report from Study
  Country: US (occurrence: US)
  Receive Date: 20240118
  Receipt Date: 20240213
  Transmission Date: 20240410
  Serious: Yes (Hospitalization, Other)
  Sender: FDA-Public Use
  Company Number: US-AMRYT PHARMACEUTICALS DAC-AEGR006666

PATIENT
  Age: 24 Year
  Sex: Male
  Weight: 63.796 kg

DRUGS (31)
  1. METRELEPTIN [Suspect]
     Active Substance: METRELEPTIN
     Indication: Acquired generalised lipodystrophy
     Dosage: 2.5 MILLIGRAM, QD
     Dates: start: 20140905, end: 20220805
  2. METRELEPTIN [Suspect]
     Active Substance: METRELEPTIN
     Dosage: 5 MILLIGRAM, QD
     Dates: start: 20220805, end: 20220907
  3. METRELEPTIN [Suspect]
     Active Substance: METRELEPTIN
     Dosage: 5 MILLIGRAM, BID
     Dates: start: 20220907
  4. ERGOCALCIFEROL [Concomitant]
     Active Substance: ERGOCALCIFEROL
     Indication: Vitamin D deficiency
     Dosage: 1 CAPSULE (50,000 IU/ML), QW
     Route: 048
     Dates: start: 20170914
  5. MELATONIN [Concomitant]
     Active Substance: MELATONIN
     Indication: Sleep disorder
     Dosage: 3 MILLIGRAM, QD
     Route: 048
     Dates: start: 2009
  6. RIFAXIMIN [Concomitant]
     Active Substance: RIFAXIMIN
     Indication: Autoimmune hepatitis
     Dosage: 550 MILLIGRAM, BID
     Route: 048
     Dates: start: 20200804
  7. LACTULOSE [Concomitant]
     Active Substance: LACTULOSE
     Indication: Autoimmune hepatitis
     Dosage: 20 GRAM, TID
     Route: 048
     Dates: start: 20200805
  8. LACTULOSE [Concomitant]
     Active Substance: LACTULOSE
     Indication: Hepatic encephalopathy
     Dosage: 20 GRAM, Q4H
     Route: 048
     Dates: start: 20230202, end: 20230203
  9. FERROUS SULFATE [Concomitant]
     Active Substance: FERROUS SULFATE
     Indication: Pancytopenia
     Dosage: 325 MILLIGRAM, QOD
     Route: 048
     Dates: start: 20201015
  10. FILGRASTIM [Concomitant]
     Active Substance: FILGRASTIM
     Indication: Neutropenia
     Dosage: 180 MICROGRAM, QD
     Route: 058
     Dates: start: 20210108, end: 20211008
  11. FILGRASTIM [Concomitant]
     Active Substance: FILGRASTIM
     Dosage: 300 MICROGRAM, QD
     Route: 058
     Dates: start: 20211009
  12. FILGRASTIM [Concomitant]
     Active Substance: FILGRASTIM
     Dosage: 0.5 MILLILITER, QD
     Route: 058
     Dates: start: 20230106
  13. INSULIN GLARGINE [Concomitant]
     Active Substance: INSULIN GLARGINE
     Indication: Diabetes mellitus
     Dosage: 16 INTERNATIONAL UNIT, BID
     Route: 058
     Dates: start: 20200805, end: 20210902
  14. INSULIN GLARGINE [Concomitant]
     Active Substance: INSULIN GLARGINE
     Dosage: 80 INTERNATIONAL UNIT, BID
     Route: 058
     Dates: start: 20210903, end: 20210903
  15. INSULIN GLARGINE [Concomitant]
     Active Substance: INSULIN GLARGINE
     Dosage: 80 INTERNATIONAL UNIT, BID
     Route: 058
     Dates: start: 20211027, end: 20220111
  16. INSULIN GLARGINE [Concomitant]
     Active Substance: INSULIN GLARGINE
     Dosage: 60 INTERNATIONAL UNIT, QD
     Route: 058
     Dates: start: 20220111, end: 20220228
  17. INSULIN GLARGINE [Concomitant]
     Active Substance: INSULIN GLARGINE
     Dosage: 80 INTERNATIONAL UNIT, QD
     Route: 058
     Dates: start: 20210903, end: 20211012
  18. INSULIN GLARGINE [Concomitant]
     Active Substance: INSULIN GLARGINE
     Dosage: 80 INTERNATIONAL UNIT, BID
     Route: 058
     Dates: start: 20211012, end: 20211027
  19. INSULIN GLARGINE [Concomitant]
     Active Substance: INSULIN GLARGINE
     Dosage: 60 INTERNATIONAL UNIT, QD
     Route: 058
     Dates: start: 20220111, end: 20220228
  20. INSULIN GLARGINE [Concomitant]
     Active Substance: INSULIN GLARGINE
     Dosage: 40 INTERNATIONAL UNIT, BID
     Route: 058
     Dates: start: 20220228, end: 20220318
  21. INSULIN GLARGINE [Concomitant]
     Active Substance: INSULIN GLARGINE
     Dosage: 50 INTERNATIONAL UNIT, BID
     Route: 058
     Dates: start: 20220318, end: 20220801
  22. INSULIN GLARGINE [Concomitant]
     Active Substance: INSULIN GLARGINE
     Dosage: 40 INTERNATIONAL UNIT, BID
     Route: 058
     Dates: start: 20220801, end: 20220805
  23. INSULIN GLARGINE [Concomitant]
     Active Substance: INSULIN GLARGINE
     Dosage: 35 INTERNATIONAL UNIT, BID
     Route: 058
     Dates: start: 20220805, end: 20230203
  24. INSULIN GLARGINE [Concomitant]
     Active Substance: INSULIN GLARGINE
     Dosage: 60 INTERNATIONAL UNIT, ONCE AT BED TIME
     Route: 058
     Dates: start: 20230203
  25. SULFAMETHOXAZOLE\TRIMETHOPRIM [Concomitant]
     Active Substance: SULFAMETHOXAZOLE\TRIMETHOPRIM
     Indication: Platelet count decreased
     Dosage: 1 TABLET, 3 DAYS A WEEK
     Route: 048
     Dates: start: 20200807, end: 20210208
  26. SULFAMETHOXAZOLE\TRIMETHOPRIM [Concomitant]
     Active Substance: SULFAMETHOXAZOLE\TRIMETHOPRIM
     Indication: Pancytopenia
     Dosage: 1 TABLET, THREE TIMES A WEEK
     Route: 048
     Dates: start: 20220228
  27. HUMALOG [Concomitant]
     Active Substance: INSULIN LISPRO
     Indication: Diabetes mellitus
     Dosage: 6 INTERNATIONAL UNIT, QD
     Route: 058
     Dates: start: 20221111, end: 20221114
  28. HUMALOG [Concomitant]
     Active Substance: INSULIN LISPRO
     Dosage: 28 INTERNATIONAL UNIT, WITH MEALS
     Route: 058
     Dates: start: 20230119
  29. PREGABALIN [Concomitant]
     Active Substance: PREGABALIN
     Indication: Pain
     Dosage: 50 MILLIGRAM, BID
     Route: 048
     Dates: start: 20221216
  30. LORATADINE [Concomitant]
     Active Substance: LORATADINE
     Indication: Hypersensitivity
     Dosage: 10 MILLIGRAM, QD
     Route: 048
     Dates: start: 20221114
  31. FENOFIBRATE [Concomitant]
     Active Substance: FENOFIBRATE
     Indication: Hypertriglyceridaemia
     Dosage: 160 MILLIGRAM, QD
     Route: 048
     Dates: start: 20230427

REACTIONS (2)
  - Neutropenia [Not Recovered/Not Resolved]
  - Rhinovirus infection [Unknown]

NARRATIVE: CASE EVENT DATE: 20230921
